FAERS Safety Report 14776839 (Version 1)
Quarter: 2018Q2

REPORT INFORMATION
  Report Type: Spontaneous
  Country: US (occurrence: US)
  Receive Date: 20180419
  Receipt Date: 20180419
  Transmission Date: 20180711
  Serious: No
  Sender: FDA-Public Use
  Company Number: US-GLENMARK PHARMACEUTICALS-2018GMK030959

PATIENT

DRUGS (2)
  1. NORETHINDRONE AND ETHINYL ESTRADIOL TABLETS USP, 1 MG/0.005 MG [Suspect]
     Active Substance: ETHINYL ESTRADIOL\NORETHINDRONE
     Indication: HORMONE LEVEL ABNORMAL
     Dosage: 1 DF, QD
     Route: 065
     Dates: start: 20180105
  2. LAMISIL [Suspect]
     Active Substance: TERBINAFINE HYDROCHLORIDE
     Indication: LOCALISED INFECTION
     Dosage: UNK
     Route: 065

REACTIONS (3)
  - Rash [Unknown]
  - Alopecia [Unknown]
  - Product use in unapproved indication [Unknown]
